FAERS Safety Report 9712910 (Version 1)
Quarter: 2013Q4

REPORT INFORMATION
  Report Type: Spontaneous
  Country: ZA (occurrence: ZA)
  Receive Date: 20131126
  Receipt Date: 20131126
  Transmission Date: 20140711
  Serious: Yes (Hospitalization)
  Sender: FDA-Public Use
  Company Number: ZA-JNJFOC-20131111146

PATIENT
  Age: 7 Year
  Sex: Female

DRUGS (2)
  1. REVELLEX [Suspect]
     Indication: CROHN^S DISEASE
     Route: 042
     Dates: start: 20130905
  2. REVELLEX [Suspect]
     Indication: CROHN^S DISEASE
     Route: 042
     Dates: start: 20131018

REACTIONS (1)
  - Colectomy [Unknown]
